FAERS Safety Report 7251204-4 (Version None)
Quarter: 2011Q1

REPORT INFORMATION
  Report Type: 
  Country: None (occurrence: None)
  Receive Date: 20110128
  Receipt Date: 20110121
  Transmission Date: 20110831
  Serious: Yes (Life-Threatening, Hospitalization)
  Sender: FDA-Public Use
  Company Number: JP-AMGEN-JPNCT2011005315

PATIENT
  Age: 18 Year
  Sex: Male
  Weight: 48 kg

DRUGS (9)
  1. PANITUMUMAB [Suspect]
     Indication: COLORECTAL CANCER
     Dosage: 6 MG/KG, Q2WK
     Route: 042
     Dates: start: 20100924, end: 20101119
  2. ANTIHISTAMINES [Concomitant]
     Indication: PROPHYLAXIS
     Dosage: UNK
     Route: 065
  3. IRINOTECAN HYDROCHLORIDE [Concomitant]
     Indication: COLORECTAL CANCER
     Route: 041
     Dates: start: 20100924
  4. CORTICOSTEROIDS [Concomitant]
     Indication: PROPHYLAXIS
     Dosage: UNK
     Route: 065
  5. FLUOROURACIL [Concomitant]
     Indication: COLORECTAL CANCER
     Route: 040
     Dates: start: 20100924
  6. HIRUDOID SOFT [Concomitant]
     Dosage: UNK
     Route: 062
  7. MYSER CREAM [Concomitant]
     Dosage: UNK
     Route: 062
  8. FLUOROURACIL [Concomitant]
     Route: 041
     Dates: start: 20100924
  9. CALCIUM LEVOFOLINATE [Concomitant]
     Indication: COLORECTAL CANCER
     Route: 041
     Dates: start: 20100924

REACTIONS (4)
  - COLON CANCER [None]
  - BLOOD MAGNESIUM DECREASED [None]
  - PARONYCHIA [None]
  - NEOPLASM MALIGNANT [None]
